FAERS Safety Report 9128862 (Version 2)
Quarter: 2013Q1

REPORT INFORMATION
  Report Type: Report from Study
  Country: US (occurrence: US)
  Receive Date: 20130228
  Receipt Date: 20130306
  Transmission Date: 20140127
  Serious: Yes (Other)
  Sender: FDA-Public Use
  Company Number: US-ROCHE-1194811

PATIENT
  Age: 53 Year
  Sex: Male
  Weight: 98.2 kg

DRUGS (9)
  1. PEG-INTERFERON ALFA 2A [Suspect]
     Indication: HEPATITIS C
     Route: 058
     Dates: start: 20130107
  2. PEG-INTERFERON ALFA 2A [Suspect]
     Route: 058
     Dates: start: 20130211, end: 20130218
  3. RIBAVIRIN [Suspect]
     Indication: HEPATITIS C
     Route: 048
     Dates: start: 20130107, end: 20130212
  4. TELAPREVIR [Suspect]
     Indication: HEPATITIS C
     Route: 048
     Dates: start: 20130107
  5. ACETYLSALICYLIC ACID [Concomitant]
     Route: 065
     Dates: start: 20120902
  6. TACROLIMUS [Concomitant]
     Route: 065
     Dates: start: 20121007
  7. ACETAMINOPHEN [Concomitant]
     Route: 065
     Dates: start: 20130107
  8. MAGNESIUM CHLORIDE [Concomitant]
     Route: 065
     Dates: start: 20100826
  9. LISINOPRIL [Concomitant]
     Route: 065
     Dates: start: 20120821

REACTIONS (1)
  - Anaemia [Unknown]
